FAERS Safety Report 19219584 (Version 2)
Quarter: 2021Q3

REPORT INFORMATION
  Report Type: Spontaneous
  Country: US (occurrence: US)
  Receive Date: 20210506
  Receipt Date: 20210728
  Transmission Date: 20211014
  Serious: Yes (Hospitalization)
  Sender: FDA-Public Use
  Company Number: US-FARMAPROD-202104-0618

PATIENT
  Sex: Male

DRUGS (17)
  1. CRESTOR [Concomitant]
     Active Substance: ROSUVASTATIN CALCIUM
  2. ASPIRINE [Concomitant]
     Active Substance: ASPIRIN
  3. ZIRGAN [Concomitant]
     Active Substance: GANCICLOVIR
     Indication: OPHTHALMIC HERPES SIMPLEX
     Route: 047
     Dates: start: 20210316
  4. KLOR?CON [Concomitant]
     Active Substance: POTASSIUM CHLORIDE
     Dosage: EXTENDED RELEASE TABLET
  5. VALTREX [Concomitant]
     Active Substance: VALACYCLOVIR HYDROCHLORIDE
     Dates: start: 20210316
  6. TEARS [Concomitant]
     Active Substance: LANOLIN\PARAFFIN
     Indication: DRY EYE
     Route: 047
     Dates: start: 2002
  7. FORTIFIED TOBRAMYCIN [Concomitant]
     Active Substance: TOBRAMYCIN
     Indication: ULCERATIVE KERATITIS
     Route: 047
     Dates: start: 20210318
  8. OXERVATE [Suspect]
     Active Substance: CENEGERMIN-BKBJ
     Route: 047
     Dates: start: 202105, end: 20210602
  9. ERYTHROMYCIN. [Concomitant]
     Active Substance: ERYTHROMYCIN
     Indication: DRY EYE
     Route: 047
     Dates: start: 20210316
  10. PREDNISONE. [Concomitant]
     Active Substance: PREDNISONE
  11. TRADJENTA [Concomitant]
     Active Substance: LINAGLIPTIN
  12. METOPROLOL SUCCINATE. [Concomitant]
     Active Substance: METOPROLOL SUCCINATE
  13. OXERVATE [Suspect]
     Active Substance: CENEGERMIN-BKBJ
     Indication: NEUROTROPHIC KERATOPATHY
     Route: 047
     Dates: start: 20210329, end: 202105
  14. FLOMAX [Concomitant]
     Active Substance: TAMSULOSIN HYDROCHLORIDE
  15. ELIQUIS [Concomitant]
     Active Substance: APIXABAN
  16. GLIPIZIDE. [Concomitant]
     Active Substance: GLIPIZIDE
  17. FORTIFIED VANCOMYCIN [Concomitant]
     Indication: ULCERATIVE KERATITIS
     Route: 047
     Dates: start: 20210318

REACTIONS (2)
  - Hospitalisation [Unknown]
  - Pneumonia [Unknown]
